FAERS Safety Report 19505165 (Version 4)
Quarter: 2023Q2

REPORT INFORMATION
  Report Type: Other
  Country: JP (occurrence: JP)
  Receive Date: 20210708
  Receipt Date: 20230412
  Transmission Date: 20230722
  Serious: Yes (Hospitalization, Other)
  Sender: FDA-Public Use
  Company Number: JP-CHUGAI-2021004626AA

PATIENT
  Age: 83 Year
  Sex: Male

DRUGS (2)
  1. TECENTRIQ [Suspect]
     Active Substance: ATEZOLIZUMAB
     Indication: Hepatocellular carcinoma
     Dosage: 1200 MILLIGRAM, SINGLE, MOST RECENT DOSE 18/MAY/2021
     Route: 041
     Dates: start: 20210518
  2. AVASTIN [Suspect]
     Active Substance: BEVACIZUMAB
     Indication: Hepatocellular carcinoma
     Dosage: 15 MILLIGRAM/KILOGRAM, SINGLE, MOST RECENT DOSE 18/MAY/2021
     Route: 041
     Dates: start: 20210518

REACTIONS (6)
  - Myasthenia gravis [Recovering/Resolving]
  - Myocarditis [Unknown]
  - Myositis [Unknown]
  - Hepatic function abnormal [Unknown]
  - Cerebral infarction [Unknown]
  - Pseudomembranous colitis [Unknown]
